FAERS Safety Report 6480990-6 (Version None)
Quarter: 2009Q4

REPORT INFORMATION
  Report Type: 
  Country: None (occurrence: None)
  Receive Date: 20091208
  Receipt Date: 20091202
  Transmission Date: 20100525
  Serious: Yes (Death)
  Sender: FDA-Public Use
  Company Number: JP-PFIZER INC-2009301893

PATIENT
  Age: 79 Year
  Sex: Male

DRUGS (2)
  1. AZULFIDINE [Suspect]
     Indication: RHEUMATOID ARTHRITIS
     Dosage: 500 MG, 2X/DAY
     Route: 048
     Dates: start: 20091003, end: 20091026
  2. FAMOTIDINE [Suspect]
     Dosage: 10 MG, 2X/DAY
     Route: 048
     Dates: start: 20091003, end: 20091026

REACTIONS (3)
  - AGRANULOCYTOSIS [None]
  - PANCYTOPENIA [None]
  - SEPTIC SHOCK [None]
